FAERS Safety Report 19921151 (Version 2)
Quarter: 2021Q4

REPORT INFORMATION
  Report Type: Other
  Country: MX (occurrence: MX)
  Receive Date: 20211006
  Receipt Date: 20211006
  Transmission Date: 20220304
  Serious: Yes (Other)
  Sender: FDA-Public Use
  Company Number: MX-ROCHE-2927076

PATIENT
  Age: 2 Month
  Sex: Female
  Weight: 11.3 kg

DRUGS (6)
  1. PULMOZYME [Suspect]
     Active Substance: DORNASE ALFA
     Indication: Cystic fibrosis
     Dosage: NEBULIZED: 1 VIAL
     Route: 055
     Dates: start: 20190415
  2. PANCREATIN [Concomitant]
     Active Substance: PANCRELIPASE
     Route: 048
  3. LORATADINE [Concomitant]
     Active Substance: LORATADINE
     Dosage: 1MG/ML, FREQUENCY: FOR 5 DAYS
  4. URSODIOL [Concomitant]
     Active Substance: URSODIOL
     Dosage: HALF CAPSULE
  5. SALINE [Concomitant]
     Active Substance: SODIUM CHLORIDE
     Dosage: NEBULIZED
     Route: 055
  6. ALBUTEROL [Concomitant]
     Active Substance: ALBUTEROL
     Dosage: FREQUENCY WAS NOT REPORTED
     Route: 055

REACTIONS (4)
  - Hepatic steatosis [Unknown]
  - Pharyngitis bacterial [Unknown]
  - Bronchiectasis [Unknown]
  - Off label use [Unknown]

NARRATIVE: CASE EVENT DATE: 20190415
